FAERS Safety Report 10081763 (Version 1)
Quarter: 2014Q2

REPORT INFORMATION
  Report Type: Spontaneous
  Country: CH (occurrence: CH)
  Receive Date: 20140416
  Receipt Date: 20140416
  Transmission Date: 20141212
  Serious: Yes (Hospitalization)
  Sender: FDA-Public Use
  Company Number: CH-ASTRAZENECA-2014SE25146

PATIENT
  Age: 86 Year
  Sex: Female

DRUGS (9)
  1. SEROQUEL [Suspect]
     Route: 048
     Dates: end: 20140114
  2. ASPIRIN CARDIO [Suspect]
     Route: 048
  3. SINTROM [Suspect]
     Route: 048
  4. PLAVIX [Suspect]
     Route: 065
  5. TOREM [Concomitant]
  6. DIOVAN [Concomitant]
  7. BELOC [Concomitant]
  8. ZANIDIP [Concomitant]
  9. MADOPAR [Concomitant]

REACTIONS (13)
  - Anaemia [Recovering/Resolving]
  - Catheter site haematoma [Recovering/Resolving]
  - Ischaemic cardiomyopathy [Unknown]
  - Acute myocardial infarction [Unknown]
  - Atrial flutter [Recovered/Resolved]
  - Coronary artery stenosis [Unknown]
  - Anxiety [Unknown]
  - Agitation [Unknown]
  - Pain [Unknown]
  - Aneurysm [Unknown]
  - Leukopenia [Recovering/Resolving]
  - Tachycardia [Recovered/Resolved]
  - Asthenia [Unknown]
